FAERS Safety Report 8487234-4 (Version None)
Quarter: 2012Q3

REPORT INFORMATION
  Report Type: 
  Country: None (occurrence: None)
  Receive Date: 20120705
  Receipt Date: 20120619
  Transmission Date: 20120928
  Serious: Yes (Other)
  Sender: FDA-Public Use
  Company Number: NL-AMGEN-NLDSP2012011622

PATIENT
  Age: 53 Year
  Sex: Female

DRUGS (4)
  1. METHOTREXATE [Concomitant]
     Dosage: UNK
  2. ENBREL [Suspect]
     Dosage: UNK
     Dates: start: 20120601
  3. ENBREL [Suspect]
     Indication: RHEUMATOID ARTHRITIS
     Dosage: 50 MG, WEEKLY
     Dates: start: 20120101
  4. FOLIC ACID [Concomitant]
     Dosage: UNK UNK, UNK

REACTIONS (5)
  - SINUSITIS [None]
  - PYREXIA [None]
  - OSTEOMYELITIS [None]
  - RHEUMATOID ARTHRITIS [None]
  - RESPIRATORY TRACT INFECTION [None]
